FAERS Safety Report 17211653 (Version 2)
Quarter: 2020Q1

REPORT INFORMATION
  Report Type: Report from Study
  Country: None (occurrence: AU)
  Receive Date: 20191229
  Receipt Date: 20200108
  Transmission Date: 20200409
  Serious: Yes (Hospitalization)
  Sender: FDA-Public Use
  Company Number: AU-ABBVIE-19K-008-3003280-00

PATIENT
  Sex: Female

DRUGS (1)
  1. DUODOPA [Suspect]
     Active Substance: CARBIDOPA\LEVODOPA
     Indication: PARKINSON^S DISEASE
     Dosage: 100ML GEL CASSETTE/16 HRS INFUSION
     Route: 050
     Dates: start: 20190211

REACTIONS (7)
  - Dyskinesia [Unknown]
  - Erythema [Unknown]
  - Skin irritation [Unknown]
  - Faecaloma [Recovered/Resolved]
  - Stoma site discharge [Unknown]
  - Stoma site erythema [Recovering/Resolving]
  - Stoma site irritation [Recovering/Resolving]

NARRATIVE: CASE EVENT DATE: 2019
